FAERS Safety Report 6752776-6 (Version None)
Quarter: 2010Q2

REPORT INFORMATION
  Report Type: 
  Country: None (occurrence: None)
  Receive Date: 20100602
  Receipt Date: 20100602
  Transmission Date: 20101027
  Serious: Yes (Hospitalization)
  Sender: FDA-Public Use
  Company Number: None

PATIENT
  Age: 50 Year
  Sex: Female
  Weight: 68.9467 kg

DRUGS (1)
  1. COPAXONE [Suspect]
     Indication: MULTIPLE SCLEROSIS
     Dosage: 20 MG DAILY IM
     Route: 030
     Dates: start: 20100511, end: 20100527

REACTIONS (4)
  - ASTHMA [None]
  - PAIN IN EXTREMITY [None]
  - PNEUMONIA [None]
  - TREMOR [None]
